FAERS Safety Report 20301072 (Version 1)
Quarter: 2022Q1

REPORT INFORMATION
  Report Type: Spontaneous
  Country: CN (occurrence: CN)
  Receive Date: 20220105
  Receipt Date: 20220105
  Transmission Date: 20220423
  Serious: Yes (Life-Threatening, Other)
  Sender: FDA-Public Use
  Company Number: CN-PFIZER INC-202101858237

PATIENT
  Age: 53 Year
  Sex: Female

DRUGS (1)
  1. MISOPROSTOL [Suspect]
     Active Substance: MISOPROSTOL
     Indication: Therapeutic procedure
     Dosage: 0.4 MG, 1X/DAY
     Route: 048
     Dates: start: 20211209, end: 20211209

REACTIONS (4)
  - Off label use [Unknown]
  - Syncope [Recovering/Resolving]
  - Pruritus [Unknown]
  - Abdominal pain lower [Unknown]

NARRATIVE: CASE EVENT DATE: 20211209
